FAERS Safety Report 5134800-X (Version None)
Quarter: 2006Q4

REPORT INFORMATION
  Report Type: 
  Country: None (occurrence: None)
  Receive Date: 20061025
  Receipt Date: 20051205
  Transmission Date: 20070319
  Serious: Yes (Hospitalization)
  Sender: FDA-Public Use
  Company Number: FR-MERCK-0512FRA00009

PATIENT
  Age: 60 Year
  Sex: Female

DRUGS (8)
  1. ZOCOR [Suspect]
     Indication: HYPERCHOLESTEROLAEMIA
     Route: 048
     Dates: start: 20030101, end: 20051115
  2. RALOXIFENE HYDROCHLORIDE [Suspect]
     Indication: OSTEOPOROSIS
     Route: 048
     Dates: start: 20030101, end: 20051115
  3. IBUPROFEN [Concomitant]
     Indication: OSTEOARTHRITIS
     Route: 048
     Dates: start: 20050901, end: 20051115
  4. IBUPROFEN [Concomitant]
     Route: 048
     Dates: start: 20050801, end: 20051001
  5. ASPIRIN [Concomitant]
     Indication: OSTEOARTHRITIS
     Route: 048
     Dates: start: 20050801, end: 20051001
  6. DIACEREIN [Suspect]
     Indication: OSTEOARTHRITIS
     Route: 048
     Dates: start: 20050930, end: 20051115
  7. HARPAGOPHYTUM PROCUMBENS [Concomitant]
     Indication: OSTEOARTHRITIS
     Route: 048
     Dates: start: 20050801, end: 20051001
  8. FLUTICASONE PROPIONATE AND SALMETEROL XINAFOATE [Concomitant]
     Indication: ASTHMA
     Route: 055

REACTIONS (2)
  - AUTOIMMUNE HEPATITIS [None]
  - FLATULENCE [None]
